FAERS Safety Report 6252382-6 (Version None)
Quarter: 2009Q3

REPORT INFORMATION
  Report Type: 
  Country: None (occurrence: None)
  Receive Date: 20090701
  Receipt Date: 20090627
  Transmission Date: 20100115
  Serious: Yes (Death)
  Sender: FDA-Public Use
  Company Number: US-PFIZER INC-2009226177

PATIENT
  Sex: Female

DRUGS (12)
  1. ALDACTONE [Suspect]
     Dosage: 25 MG, UNK
  2. ACETYLSALICYLIC ACID [Concomitant]
     Dosage: 81 MG, UNK
  3. LOTENSIN [Concomitant]
     Dosage: 20 MG, UNK
  4. COREG [Concomitant]
     Dosage: 12.5 MG, UNK
  5. LOVENOX [Concomitant]
     Dosage: 100 MG, UNK
  6. LASIX [Concomitant]
     Dosage: 80 MG, UNK
  7. IMDUR [Concomitant]
     Dosage: 30 MG, UNK
  8. NITROGLYCERIN [Concomitant]
     Dosage: UNK
     Route: 060
  9. KLOR-CON [Concomitant]
     Dosage: 20 MEQ, UNK
  10. ZOCOR [Concomitant]
     Dosage: 80 MG, UNK
  11. WARFARIN SODIUM [Concomitant]
     Dosage: 10 MG, UNK
  12. PEPCID [Concomitant]

REACTIONS (1)
  - DEATH [None]
